FAERS Safety Report 21221317 (Version 5)
Quarter: 2022Q4

REPORT INFORMATION
  Report Type: Spontaneous
  Country: CN (occurrence: CN)
  Receive Date: 20220817
  Receipt Date: 20221021
  Transmission Date: 20230112
  Serious: Yes (Hospitalization)
  Sender: FDA-Public Use
  Company Number: CN-NOVARTISPH-NVSC2022CN185045

PATIENT

DRUGS (13)
  1. ELTROMBOPAG OLAMINE [Suspect]
     Active Substance: ELTROMBOPAG OLAMINE
     Indication: Platelet count decreased
     Dosage: UNK
     Route: 048
  2. ELTROMBOPAG OLAMINE [Suspect]
     Active Substance: ELTROMBOPAG OLAMINE
     Dosage: UNK (2 TABLETS OF ELTROMBOPAG)
     Route: 065
     Dates: start: 20220712
  3. ELTROMBOPAG OLAMINE [Suspect]
     Active Substance: ELTROMBOPAG OLAMINE
     Dosage: UNK (2 TABLETS OF ELTROMBOPAG)
     Route: 065
     Dates: start: 20220713
  4. ELTROMBOPAG OLAMINE [Suspect]
     Active Substance: ELTROMBOPAG OLAMINE
     Dosage: UNK (2 TABLETS OF ELTROMBOPAG)
     Route: 065
     Dates: start: 20220714
  5. ELTROMBOPAG OLAMINE [Suspect]
     Active Substance: ELTROMBOPAG OLAMINE
     Dosage: UNK (1 TABLETS OF ELTROMBOPAG)
     Route: 065
     Dates: start: 20220718
  6. ELTROMBOPAG OLAMINE [Suspect]
     Active Substance: ELTROMBOPAG OLAMINE
     Dosage: UNK (1 TABLET OF ELTROMBOPAG WAS STOPPED ON 20 JUL)
     Route: 065
     Dates: start: 20220720
  7. ELTROMBOPAG OLAMINE [Suspect]
     Active Substance: ELTROMBOPAG OLAMINE
     Dosage: UNK (1 TABLET OF ELTROMBOPAG WAS STOPPED ON 25 JUL)
     Route: 065
     Dates: start: 20220725
  8. ELTROMBOPAG OLAMINE [Suspect]
     Active Substance: ELTROMBOPAG OLAMINE
     Dosage: UNK (1 TABLET OF ELTROMBOPAG EACH DAY)
     Route: 065
     Dates: start: 20220729
  9. ELTROMBOPAG OLAMINE [Suspect]
     Active Substance: ELTROMBOPAG OLAMINE
     Dosage: UNK (1 TABLET OF ELTROMBOPAG EACH DAY)
     Route: 065
     Dates: start: 20220805
  10. ELTROMBOPAG OLAMINE [Suspect]
     Active Substance: ELTROMBOPAG OLAMINE
     Dosage: UNK (AT 15:00, 1 TABLET OF ELTROMBOPAG; AT 21:30PM, 1 TABLET OF ELTROMBOPAG)
     Route: 065
     Dates: start: 20220808
  11. ELTROMBOPAG OLAMINE [Suspect]
     Active Substance: ELTROMBOPAG OLAMINE
     Dosage: UNK (AT 5:45PM, 1 TABLET OF ELTROMBOPAG (OLD); AT 14:30PM, 2 TABLETS OF ELTROMBOPAG (OLD). A NEW BOX
     Route: 065
     Dates: start: 20220809
  12. ELTROMBOPAG OLAMINE [Suspect]
     Active Substance: ELTROMBOPAG OLAMINE
     Dosage: UNK
     Route: 048
  13. PHLOROGLUCINOL [Suspect]
     Active Substance: PHLOROGLUCINOL
     Indication: Product used for unknown indication
     Dosage: UNK
     Route: 017

REACTIONS (10)
  - Platelet count decreased [Recovered/Resolved]
  - White blood cell count decreased [Recovered/Resolved]
  - Granulocyte count decreased [Recovered/Resolved]
  - Monocyte count increased [Recovered/Resolved]
  - Red blood cell count increased [Recovered/Resolved]
  - Drug hypersensitivity [Recovered/Resolved]
  - Erythema [Recovered/Resolved]
  - Swelling [Recovered/Resolved]
  - Poor quality product administered [Recovered/Resolved]
  - Drug ineffective [Recovered/Resolved]
